FAERS Safety Report 24671103 (Version 2)
Quarter: 2024Q4

REPORT INFORMATION
  Report Type: Spontaneous
  Country: ES (occurrence: ES)
  Receive Date: 20241127
  Receipt Date: 20241205
  Transmission Date: 20250115
  Serious: Yes (Other)
  Sender: JOHNSON AND JOHNSON
  Company Number: ES-BAYER-2024A166733

PATIENT
  Age: 83 Year
  Sex: Male

DRUGS (1)
  1. XARELTO [Suspect]
     Active Substance: RIVAROXABAN
     Indication: Product used for unknown indication
     Dosage: 15 MG
     Route: 048
     Dates: start: 2015

REACTIONS (5)
  - Kidney infection [Not Recovered/Not Resolved]
  - Pulmonary embolism [Unknown]
  - Renal failure [Unknown]
  - Hip surgery [Unknown]
  - Haematuria [Unknown]
